FAERS Safety Report 24699766 (Version 1)
Quarter: 2024Q4

REPORT INFORMATION
  Report Type: Spontaneous
  Country: PT (occurrence: PT)
  Receive Date: 20241205
  Receipt Date: 20241205
  Transmission Date: 20250114
  Serious: Yes (Hospitalization, Other)
  Sender: MERCK
  Company Number: PT-009507513-2311PRT006452

PATIENT
  Age: 46 Year
  Sex: Female

DRUGS (4)
  1. PEMBROLIZUMAB [Suspect]
     Active Substance: PEMBROLIZUMAB
     Indication: Triple negative breast cancer
     Dosage: 200 MILLIGRAM, EVERY 21 DAYS (ALSO REPORTED AS X4)
     Dates: start: 20221004, end: 20230221
  2. CARBOPLATIN [Suspect]
     Active Substance: CARBOPLATIN
     Indication: Triple negative breast cancer
     Dosage: AREA UNDER THE CURVE (AUC) 2, WEEKLY (ALSO REPORTED AS X12)
     Dates: start: 20221004, end: 20230221
  3. PACLITAXEL [Suspect]
     Active Substance: PACLITAXEL
     Indication: Triple negative breast cancer
     Dosage: 80 MILLIGRAM/SQ. METER, WEEKLY (ALSO REPORTED AS X12)
     Dates: start: 20221004, end: 20230221
  4. IRBESARTAN [Concomitant]
     Active Substance: IRBESARTAN
     Dosage: 150 MILLIGRAM

REACTIONS (5)
  - Immune-mediated hepatitis [Recovered/Resolved]
  - Pseudomonas infection [Recovered/Resolved]
  - Catheter site infection [Recovered/Resolved]
  - Skin toxicity [Unknown]
  - Specific gravity urine increased [Unknown]

NARRATIVE: CASE EVENT DATE: 20220101
